FAERS Safety Report 4635769-4 (Version None)
Quarter: 2005Q2

REPORT INFORMATION
  Report Type: 
  Country: None (occurrence: None)
  Receive Date: 20050414
  Receipt Date: 20050330
  Transmission Date: 20051028
  Serious: Yes (Death, Other)
  Sender: FDA-Public Use
  Company Number: CIP02001316

PATIENT
  Age: 76 Year
  Sex: Female

DRUGS (4)
  1. ACTONEL [Suspect]
     Indication: OSTEOPOROSIS POSTMENOPAUSAL
     Dosage: 5 MG DAILY, ORAL
     Route: 048
     Dates: start: 20050424, end: 20020508
  2. CALCIUM (CALCIUM) [Concomitant]
  3. CALCIFEROL (ERGOCALCIFEROL) [Concomitant]
  4. HOMEOPATHIC PREPARATION [Concomitant]

REACTIONS (5)
  - ABDOMINAL PAIN [None]
  - DUODENAL ULCER PERFORATION [None]
  - PANCREATITIS [None]
  - PERITONITIS [None]
  - RENAL FAILURE [None]
